FAERS Safety Report 18228798 (Version 1)
Quarter: 2020Q3

REPORT INFORMATION
  Report Type: Spontaneous
  Country: DK (occurrence: DK)
  Receive Date: 20200903
  Receipt Date: 20200903
  Transmission Date: 20201103
  Serious: Yes (Other)
  Sender: FDA-Public Use
  Company Number: DK-SA-2020SA209259

PATIENT

DRUGS (1)
  1. LEFLUNOMIDE. [Suspect]
     Active Substance: LEFLUNOMIDE
     Indication: RHEUMATOID ARTHRITIS
     Dosage: UNK
     Route: 065
     Dates: start: 200001

REACTIONS (9)
  - Vasculitis [Recovering/Resolving]
  - Skin ulcer [Recovering/Resolving]
  - Skin lesion [Recovering/Resolving]
  - Haematuria [Recovering/Resolving]
  - Bullous haemorrhagic dermatosis [Recovering/Resolving]
  - Mesangioproliferative glomerulonephritis [Recovering/Resolving]
  - Henoch-Schonlein purpura nephritis [Recovering/Resolving]
  - Proteinuria [Recovering/Resolving]
  - Livedo reticularis [Recovering/Resolving]
